FAERS Safety Report 25058767 (Version 3)
Quarter: 2025Q2

REPORT INFORMATION
  Report Type: Spontaneous
  Country: US (occurrence: US)
  Receive Date: 20250310
  Receipt Date: 20250415
  Transmission Date: 20250716
  Serious: Yes (Disabling, Other)
  Sender: REGENERON
  Company Number: US-REGENERON PHARMACEUTICALS, INC.-2025-043828

PATIENT
  Sex: Female

DRUGS (1)
  1. EYLEA [Suspect]
     Active Substance: AFLIBERCEPT
     Indication: Diabetic retinal oedema
     Dosage: 2 MG, Q4W, LEFT EYE, FORMULATION: PFS (GERRESHEIMER)
     Dates: start: 20230720, end: 20241210

REACTIONS (7)
  - Blindness unilateral [Unknown]
  - Ocular hypertension [Recovered/Resolved]
  - Vitreous haemorrhage [Recovered/Resolved]
  - Hyphaema [Recovered/Resolved]
  - Retinal aneurysm [Unknown]
  - Retinal detachment [Recovered/Resolved]
  - Visual acuity reduced [Unknown]

NARRATIVE: CASE EVENT DATE: 20241112
